FAERS Safety Report 21128261 (Version 1)
Quarter: 2022Q3

REPORT INFORMATION
  Report Type: Spontaneous
  Country: JP (occurrence: None)
  Receive Date: 20220725
  Receipt Date: 20220725
  Transmission Date: 20221027
  Serious: Yes (Death, Hospitalization)
  Sender: FDA-Public Use
  Company Number: 2022A264186

PATIENT
  Age: 78 Year
  Sex: Male

DRUGS (6)
  1. IMFINZI [Suspect]
     Active Substance: DURVALUMAB
     Indication: Non-small cell lung cancer
     Route: 041
     Dates: start: 202205, end: 202205
  2. PIPERACILLIN SODIUM\TAZOBACTAM SODIUM [Suspect]
     Active Substance: PIPERACILLIN SODIUM\TAZOBACTAM SODIUM
     Dosage: DOSE UNKNOWN
     Route: 065
  3. MEROPENEM [Suspect]
     Active Substance: MEROPENEM
     Dosage: DOSE UNKNOWN
     Route: 065
  4. METHYLPREDNISOLONE [Suspect]
     Active Substance: METHYLPREDNISOLONE
     Dosage: 80.0MG UNKNOWN
     Route: 065
  5. PREDNISOLONE [Suspect]
     Active Substance: PREDNISOLONE
     Dosage: 45.0MG UNKNOWN
     Route: 065
  6. PREDNISOLONE [Suspect]
     Active Substance: PREDNISOLONE
     Dosage: 30.0MG UNKNOWN
     Route: 065

REACTIONS (5)
  - Pneumonitis [Fatal]
  - Pneumonia aspiration [Fatal]
  - Muscular weakness [Unknown]
  - Immunodeficiency [Unknown]
  - Corynebacterium infection [Unknown]

NARRATIVE: CASE EVENT DATE: 20220101
